FAERS Safety Report 5445781-3 (Version None)
Quarter: 2007Q3

REPORT INFORMATION
  Report Type: 
  Country: None (occurrence: None)
  Receive Date: 20070904
  Receipt Date: 20070816
  Transmission Date: 20080115
  Serious: Yes (Other)
  Sender: FDA-Public Use
  Company Number: 2007RR-09438

PATIENT
  Sex: Female

DRUGS (2)
  1. CLINDAMYCIN HCL [Suspect]
     Indication: TOOTH ABSCESS
     Dosage: 150 MG, QID
  2. BREVINOR (ETHINYLOESTRADIOL, NORETHISTERONE) [Suspect]

REACTIONS (5)
  - DRUG EXPOSURE DURING PREGNANCY [None]
  - DRUG INEFFECTIVE [None]
  - DRUG INTERACTION [None]
  - NAUSEA [None]
  - PREGNANCY ON ORAL CONTRACEPTIVE [None]
